FAERS Safety Report 9299430 (Version 4)
Quarter: 2014Q3

REPORT INFORMATION
  Report Type: Spontaneous
  Country: US (occurrence: US)
  Receive Date: 20130521
  Receipt Date: 20140714
  Transmission Date: 20150326
  Serious: Yes (Hospitalization, Disabling, Other)
  Sender: FDA-Public Use
  Company Number: US-009507513-1305USA010156

PATIENT
  Sex: Male

DRUGS (2)
  1. PROPECIA [Suspect]
     Active Substance: FINASTERIDE
     Indication: ALOPECIA
     Dosage: 1 MG, UNK
     Route: 048
     Dates: start: 1999, end: 200902
  2. PROPECIA [Suspect]
     Active Substance: FINASTERIDE
     Indication: ANDROGENETIC ALOPECIA

REACTIONS (15)
  - Arthralgia [Not Recovered/Not Resolved]
  - Ejaculation disorder [Unknown]
  - Carpal tunnel syndrome [Not Recovered/Not Resolved]
  - Cardiac disorder [Not Recovered/Not Resolved]
  - Coronary arterial stent insertion [Unknown]
  - Hormone level abnormal [Unknown]
  - Brain injury [Unknown]
  - Sexual dysfunction [Not Recovered/Not Resolved]
  - Semen volume decreased [Unknown]
  - Depression [Not Recovered/Not Resolved]
  - Libido decreased [Unknown]
  - Cardiac operation [Unknown]
  - Soft tissue injury [Unknown]
  - Poor quality sleep [Not Recovered/Not Resolved]
  - Erectile dysfunction [Not Recovered/Not Resolved]

NARRATIVE: CASE EVENT DATE: 2000
